FAERS Safety Report 23098185 (Version 3)
Quarter: 2023Q4

REPORT INFORMATION
  Report Type: Report from Study
  Country: DE (occurrence: DE)
  Receive Date: 20231023
  Receipt Date: 20231103
  Transmission Date: 20240110
  Serious: Yes (Hospitalization)
  Sender: FDA-Public Use
  Company Number: DE-JNJFOC-20231035925

PATIENT
  Age: 83 Year
  Sex: Male
  Weight: 70.5 kg

DRUGS (5)
  1. DARATUMUMAB [Suspect]
     Active Substance: DARATUMUMAB
     Indication: Plasma cell myeloma
     Dosage: CYCLE 7
     Route: 058
     Dates: start: 20230405
  2. DARATUMUMAB [Suspect]
     Active Substance: DARATUMUMAB
     Dosage: CYCLE 7
     Route: 058
     Dates: start: 20230920
  3. VELCADE [Suspect]
     Active Substance: BORTEZOMIB
     Indication: Plasma cell myeloma
     Route: 065
  4. CYCLOPHOSPHAMIDE [Suspect]
     Active Substance: CYCLOPHOSPHAMIDE
     Indication: Plasma cell myeloma
     Route: 065
  5. DEXAMETHASONE [Suspect]
     Active Substance: DEXAMETHASONE
     Indication: Plasma cell myeloma
     Route: 065

REACTIONS (1)
  - Spinal osteoarthritis [Recovered/Resolved]

NARRATIVE: CASE EVENT DATE: 20231012
